FAERS Safety Report 10243336 (Version 1)
Quarter: 2014Q2

REPORT INFORMATION
  Report Type: Spontaneous
  Country: ES (occurrence: ES)
  Receive Date: 20140618
  Receipt Date: 20140618
  Transmission Date: 20141212
  Serious: Yes (Other)
  Sender: FDA-Public Use
  Company Number: PHHY2014ES074365

PATIENT
  Age: 76 Year
  Sex: Male

DRUGS (4)
  1. EXFORGE HCT [Suspect]
     Indication: HYPERTENSION
     Dosage: 1 DF (VALS 160MG, AMLO 10MG, HCTZ 12.5MG) QD
     Route: 048
     Dates: start: 20101123, end: 20130726
  2. SERTRALINE [Interacting]
     Indication: DEPRESSION
     Dosage: 50 MG, QD
     Route: 048
     Dates: start: 20130705, end: 20130726
  3. FLUCONAZOL [Interacting]
     Indication: INTERTRIGO CANDIDA
     Dosage: 50 MG, QD
     Route: 048
     Dates: start: 20130628, end: 20130726
  4. LORAZEPAM [Concomitant]
     Indication: ANXIETY
     Dosage: 1 MG, BID
     Route: 048
     Dates: start: 20130705

REACTIONS (2)
  - Parkinsonism [Recovered/Resolved]
  - Vertigo positional [Recovered/Resolved]
